FAERS Safety Report 7386961-X (Version None)
Quarter: 2011Q1

REPORT INFORMATION
  Report Type: 
  Country: None (occurrence: None)
  Receive Date: 20110331
  Receipt Date: 20110323
  Transmission Date: 20110831
  Serious: Yes (Hospitalization)
  Sender: FDA-Public Use
  Company Number: FR-MPIJNJ-2011-01245

PATIENT

DRUGS (6)
  1. CEFIXIME [Concomitant]
  2. VELCADE [Suspect]
     Indication: MULTIPLE MYELOMA
     Dosage: 2.2 MG, CYCLIC
     Route: 065
     Dates: start: 20110308, end: 20110316
  3. AUGMENTIN '125' [Concomitant]
     Indication: PYREXIA
  4. CIPROFLOXACIN HYDROCHLORIDE [Concomitant]
  5. REVLIMID [Suspect]
     Indication: MULTIPLE MYELOMA
     Dosage: 25 MG, UNK
     Route: 065
     Dates: start: 20110308, end: 20110317
  6. DEXAMETHASONE [Suspect]
     Indication: MULTIPLE MYELOMA
     Dosage: 20 MG, UNK
     Route: 065
     Dates: start: 20110308, end: 20110316

REACTIONS (3)
  - SOMNOLENCE [None]
  - DYSPNOEA [None]
  - TACHYCARDIA [None]
